FAERS Safety Report 10217204 (Version 1)
Quarter: 2014Q2

REPORT INFORMATION
  Report Type: Spontaneous
  Country: BR (occurrence: BR)
  Receive Date: 20140604
  Receipt Date: 20140604
  Transmission Date: 20141212
  Serious: Yes (Hospitalization)
  Sender: FDA-Public Use
  Company Number: BR-ACTAVIS-2014-11998

PATIENT
  Age: 61 Year
  Sex: Female

DRUGS (1)
  1. ZOLEDRONIC ACID (UNKNOWN) [Suspect]
     Indication: OSTEITIS DEFORMANS
     Dosage: 4 MG, UNKNOWN
     Route: 042

REACTIONS (6)
  - Intracranial pressure increased [Recovered/Resolved with Sequelae]
  - Condition aggravated [Recovered/Resolved with Sequelae]
  - Hypocalcaemia [Recovered/Resolved]
  - Hypotension [Recovered/Resolved]
  - Pyrexia [Recovered/Resolved]
  - Influenza like illness [Recovered/Resolved]
